FAERS Safety Report 6466919-5 (Version None)
Quarter: 2009Q4

REPORT INFORMATION
  Report Type: 
  Country: None (occurrence: None)
  Receive Date: 20091202
  Receipt Date: 20091124
  Transmission Date: 20100525
  Serious: Yes (Hospitalization, Other)
  Sender: FDA-Public Use
  Company Number: CA-PFIZER INC-2009257125

PATIENT
  Age: 64 Year
  Sex: Female

DRUGS (5)
  1. CHAMPIX [Suspect]
     Dosage: UNK
     Dates: start: 20090701
  2. BACLOFEN [Concomitant]
     Dosage: UNK
  3. VALSARTAN [Concomitant]
     Dosage: UNK
  4. NIFEDIPINE [Concomitant]
     Dosage: UNK
  5. GLYBURIDE [Concomitant]
     Dosage: UNK

REACTIONS (3)
  - CONFUSIONAL STATE [None]
  - FALL [None]
  - PSYCHOTIC DISORDER [None]
